FAERS Safety Report 15236419 (Version 4)
Quarter: 2024Q1

REPORT INFORMATION
  Report Type: Other
  Country: AT (occurrence: None)
  Receive Date: 20180803
  Receipt Date: 20240119
  Transmission Date: 20240409
  Serious: Yes (Hospitalization)
  Sender: FDA-Public Use
  Company Number: AT-ROCHE-2162318

PATIENT
  Age: 42 Year
  Sex: Female
  Weight: 58 kg

DRUGS (38)
  1. TRASTUZUMAB [Suspect]
     Active Substance: TRASTUZUMAB
     Indication: HER2 positive breast cancer
     Dosage: MOST RECENT DOSE PRIOR TO THE EVENT: 30/JAN/2018
     Route: 042
     Dates: start: 20180109, end: 20180109
  2. PERTUZUMAB [Suspect]
     Active Substance: PERTUZUMAB
     Indication: HER2 positive breast cancer
     Dosage: MOST RECENT DOSE PRIOR TO THE EVENT: 30/JAN/2018
     Route: 042
     Dates: start: 20180109, end: 20180109
  3. DENOSUMAB [Suspect]
     Active Substance: DENOSUMAB
     Indication: Breast cancer
     Route: 058
     Dates: start: 20180109
  4. DOCETAXEL [Suspect]
     Active Substance: DOCETAXEL\DOCETAXEL ANHYDROUS
     Indication: Breast cancer
     Route: 042
     Dates: start: 20180109
  5. ESOMEPRAZOLE [Concomitant]
     Active Substance: ESOMEPRAZOLE
     Dates: start: 20180115
  6. ZOFRAN [Concomitant]
     Active Substance: ONDANSETRON HYDROCHLORIDE
     Dates: start: 20180115
  7. DIPHENHYDRAMINE HYDROCHLORIDE [Concomitant]
     Active Substance: DIPHENHYDRAMINE HYDROCHLORIDE
     Dates: start: 20180109
  8. PASPERTIN [Concomitant]
     Indication: Pancreatitis
     Dates: start: 20180719, end: 20180719
  9. NOVALGIN (AUSTRIA) [Concomitant]
     Indication: Pancreatitis
     Dates: start: 20180719, end: 20180719
  10. BUTYLSCOPOLAMINE [Concomitant]
     Active Substance: BUTYLSCOPOLAMINE
     Indication: Pancreatitis
     Dates: start: 20180719, end: 20180719
  11. BUTYLSCOPOLAMINE BROMIDE [Concomitant]
     Active Substance: BUTYLSCOPOLAMINE BROMIDE
     Indication: Pancreatitis
     Dates: start: 20180719, end: 20180719
  12. NALBUPHINE [Concomitant]
     Active Substance: NALBUPHINE
     Indication: Pancreatitis
     Dosage: ONGOING = NOT CHECKED
     Dates: start: 20180719, end: 20180719
  13. METRONIDAZOLE [Concomitant]
     Active Substance: METRONIDAZOLE
     Dosage: ONGOING = NOT CHECKED
     Dates: start: 20180719, end: 20180805
  14. PANCRELIPASE [Concomitant]
     Active Substance: PANCRELIPASE
     Dosage: ONGOING = CHECKED
     Dates: start: 20180720
  15. ANTIFLAT [Concomitant]
     Dosage: ONGOING = NOT CHECKED
     Dates: start: 20180725, end: 20180728
  16. ZOLPIDEM TARTRATE [Concomitant]
     Active Substance: ZOLPIDEM TARTRATE
     Dosage: ONGOING = NOT CHECKED
     Dates: start: 20180720, end: 20180725
  17. DICLOFENAC SODIUM\ORPHENADRINE CITRATE [Concomitant]
     Active Substance: DICLOFENAC SODIUM\ORPHENADRINE CITRATE
     Indication: Cholelithiasis
     Dosage: ONGOING = NOT CHECKED
     Dates: start: 20180719, end: 20180724
  18. DICLOFENAC SODIUM\ORPHENADRINE CITRATE [Concomitant]
     Active Substance: DICLOFENAC SODIUM\ORPHENADRINE CITRATE
     Dosage: ONGOING = NOT CHECKED
     Dates: start: 20180808, end: 20180809
  19. FRAGMIN [Concomitant]
     Active Substance: DALTEPARIN SODIUM
     Indication: Cholelithiasis
     Dosage: ONGOING = NOT CHECKED
     Dates: start: 20180808, end: 20180810
  20. UNASYN [Concomitant]
     Active Substance: AMPICILLIN SODIUM\SULBACTAM SODIUM
     Indication: Cholelithiasis
     Dosage: ONGOING = NOT CHECKED
     Dates: start: 20180808, end: 20180808
  21. CEFUROXIME [Concomitant]
     Active Substance: CEFUROXIME
     Indication: Pancreatitis
     Dosage: ONGOING = NOT CHECKED
     Dates: start: 20180719, end: 20180805
  22. POLYETHYLENE GLYCOL 4000 [Concomitant]
     Active Substance: POLYETHYLENE GLYCOL 4000
     Dates: start: 20180115
  23. EMEND [Concomitant]
     Active Substance: APREPITANT
     Dates: start: 20180110
  24. EMEND [Concomitant]
     Active Substance: APREPITANT
     Dosage: ONGOING = CHECKED
     Dates: start: 20180109
  25. ZOFRAN [Concomitant]
     Active Substance: ONDANSETRON HYDROCHLORIDE
     Dates: start: 20180109
  26. ZOFRAN [Concomitant]
     Active Substance: ONDANSETRON HYDROCHLORIDE
     Dosage: ONGOING = CHECKED
     Dates: start: 20180109
  27. DEXAMETHASONE [Concomitant]
     Active Substance: DEXAMETHASONE
     Dates: start: 20180109
  28. DEXAMETHASONE [Concomitant]
     Active Substance: DEXAMETHASONE
     Dosage: ONGOING = CHECKED
     Dates: start: 20180109
  29. DEXAMETHASONE [Concomitant]
     Active Substance: DEXAMETHASONE
     Dosage: ONGOING = CHECKED
     Dates: start: 20180109
  30. LIPEGFILGRASTIM [Concomitant]
     Active Substance: LIPEGFILGRASTIM
     Dates: start: 20180109
  31. ACETAMINOPHEN [Concomitant]
     Active Substance: ACETAMINOPHEN
     Dates: start: 20180115
  32. DEXPANTHENOL [Concomitant]
     Active Substance: DEXPANTHENOL
     Dates: start: 20180115
  33. ASCORBIC ACID\CALCIUM PHOSPHATE\CHOLECALCIFEROL\CITRIC ACID MONOHYDRAT [Concomitant]
     Active Substance: ASCORBIC ACID\CALCIUM PHOSPHATE\CHOLECALCIFEROL\CITRIC ACID MONOHYDRATE
     Dates: start: 201801
  34. XYLANAEST PURUM [Concomitant]
     Dates: start: 20180109, end: 20180109
  35. LOVENOX [Concomitant]
     Active Substance: ENOXAPARIN SODIUM
     Route: 058
     Dates: start: 20190130
  36. FLUCLOXACILLIN [Concomitant]
     Active Substance: FLUCLOXACILLIN
     Dates: start: 20190130
  37. KETOPROFEN [Concomitant]
     Active Substance: KETOPROFEN
     Dates: start: 20190130
  38. LYRICA [Concomitant]
     Active Substance: PREGABALIN
     Dates: start: 20190131

REACTIONS (1)
  - Pancreatitis [Recovered/Resolved]

NARRATIVE: CASE EVENT DATE: 20180719
